FAERS Safety Report 16617533 (Version 3)
Quarter: 2019Q3

REPORT INFORMATION
  Report Type: Report from Study
  Country: None (occurrence: CL)
  Receive Date: 20190723
  Receipt Date: 20190821
  Transmission Date: 20191004
  Serious: Yes (Hospitalization, Other)
  Sender: FDA-Public Use
  Company Number: CL-ABBVIE-19K-034-2861041-00

PATIENT
  Sex: Female

DRUGS (3)
  1. HUMIRA [Suspect]
     Active Substance: ADALIMUMAB
     Indication: RHEUMATOID ARTHRITIS
     Route: 058
     Dates: start: 20181019
  2. METHOTREXATE. [Concomitant]
     Active Substance: METHOTREXATE
     Indication: PRODUCT USED FOR UNKNOWN INDICATION
  3. PREDNISONE. [Concomitant]
     Active Substance: PREDNISONE
     Indication: PRODUCT USED FOR UNKNOWN INDICATION

REACTIONS (7)
  - Blood thyroid stimulating hormone increased [Unknown]
  - Oedema peripheral [Recovered/Resolved]
  - Immunodeficiency [Recovered/Resolved]
  - Anal fistula [Recovered/Resolved]
  - Neutropenia [Unknown]
  - Post procedural complication [Unknown]
  - Atrophy [Recovered/Resolved]

NARRATIVE: CASE EVENT DATE: 2019
